FAERS Safety Report 9794418 (Version 1)
Quarter: 2014Q1

REPORT INFORMATION
  Report Type: Spontaneous
  Country: US (occurrence: US)
  Receive Date: 20140102
  Receipt Date: 20140102
  Transmission Date: 20141002
  Serious: Yes (Other)
  Sender: FDA-Public Use
  Company Number: US-ELI_LILLY_AND_COMPANY-US201312008320

PATIENT
  Sex: Male

DRUGS (6)
  1. HUMALOG LISPRO [Suspect]
     Indication: TYPE 2 DIABETES MELLITUS
     Dosage: UNK, PRN
     Route: 065
     Dates: start: 1996, end: 201304
  2. HUMALOG LISPRO [Suspect]
     Indication: TYPE 2 DIABETES MELLITUS
     Dosage: UNK, PRN
     Route: 065
     Dates: start: 201304
  3. LANTUS [Concomitant]
  4. QUINAPRIL [Concomitant]
  5. EXFORGE [Concomitant]
  6. PREDNISONE [Concomitant]
     Indication: GLOMERULONEPHRITIS
     Dosage: UNK

REACTIONS (5)
  - Glomerulonephritis [Unknown]
  - Drug effect prolonged [Unknown]
  - Drug effect delayed [Unknown]
  - Blood glucose increased [Unknown]
  - Blood glucose decreased [Unknown]
